FAERS Safety Report 6142897-3 (Version None)
Quarter: 2009Q2

REPORT INFORMATION
  Report Type: 
  Country: None (occurrence: None)
  Receive Date: 20090403
  Receipt Date: 20090327
  Transmission Date: 20091009
  Serious: Yes (Death)
  Sender: FDA-Public Use
  Company Number: US-JNJFOC-20080102857

PATIENT
  Sex: Female
  Weight: 123.38 kg

DRUGS (5)
  1. ORTHO EVRA [Suspect]
     Indication: CONTRACEPTION
     Route: 062
  2. PROZAC [Concomitant]
  3. PHENTERMINE [Concomitant]
     Indication: WEIGHT DECREASED
  4. VIOXX [Concomitant]
  5. ACIPEX [Concomitant]

REACTIONS (1)
  - CEREBROVASCULAR ACCIDENT [None]
